FAERS Safety Report 7973437-1 (Version None)
Quarter: 2011Q4

REPORT INFORMATION
  Report Type: 
  Country: None (occurrence: None)
  Receive Date: 20111213
  Receipt Date: 20111206
  Transmission Date: 20120403
  Serious: Yes (Hospitalization, Other)
  Sender: FDA-Public Use
  Company Number: CA-BAYER-2011-117307

PATIENT
  Age: 28 Year
  Sex: Male

DRUGS (6)
  1. ASPIRIN [Suspect]
     Indication: PLATELET AGGREGATION INHIBITION
     Dosage: 162 MG, UNK
     Route: 048
  2. OMEPRAZOLE [Concomitant]
     Indication: PROPHYLAXIS
     Dosage: 40 MG, UNK
     Route: 048
  3. ASPIRIN [Suspect]
     Indication: CARDIOVASCULAR EVENT PROPHYLAXIS
  4. ASPIRIN [Suspect]
     Indication: ISCHAEMIC STROKE
  5. VERAPAMIL [Suspect]
     Indication: CARDIOVASCULAR EVENT PROPHYLAXIS
  6. VERAPAMIL [Suspect]
     Indication: ISCHAEMIC STROKE
     Dosage: 360 MG, UNK
     Route: 048

REACTIONS (4)
  - MUSCULAR WEAKNESS [None]
  - PERIPHERAL NERVE INJURY [None]
  - PARAESTHESIA [None]
  - COMPARTMENT SYNDROME [None]
